FAERS Safety Report 15771192 (Version 4)
Quarter: 2019Q1

REPORT INFORMATION
  Report Type: Spontaneous
  Country: PL (occurrence: PL)
  Receive Date: 20181228
  Receipt Date: 20190328
  Transmission Date: 20190417
  Serious: Yes (Other)
  Sender: FDA-Public Use
  Company Number: PL-MYLANLABS-2018M1014684

PATIENT
  Age: 57 Year
  Sex: Male
  Weight: 86 kg

DRUGS (20)
  1. ZOLPIDEM [Interacting]
     Active Substance: ZOLPIDEM\ZOLPIDEM TARTRATE
     Indication: DIABETES MELLITUS
     Dosage: 10 MILLIGRAM, QD (AFTER TWICE ADMINISTRATION OF THIS MEDICINE THE PATIENT DISCONTINUED)
     Route: 065
  2. DULOXETINE. [Concomitant]
     Active Substance: DULOXETINE
     Indication: PAIN MANAGEMENT
     Dosage: 120 MILLIGRAM
     Route: 065
  3. TRAZODONE [Concomitant]
     Active Substance: TRAZODONE HYDROCHLORIDE
     Indication: PRODUCT USED FOR UNKNOWN INDICATION
     Dosage: 75 MILLIGRAM, QD,THREE HOURS BEFORE PLANNED BEDTIME
     Route: 065
  4. FLUOXETINE [Interacting]
     Active Substance: FLUOXETINE HYDROCHLORIDE
     Indication: FIBROMYALGIA
     Dosage: 40 MILLIGRAM, QD(20 MG,BID, 2 X 20 MG IN THE MORNING AND IN THE EVENING
     Route: 065
     Dates: start: 20171103, end: 20171122
  5. DIAZEPAM. [Interacting]
     Active Substance: DIAZEPAM
     Indication: INITIAL INSOMNIA
  6. ZOFENIL [Concomitant]
     Active Substance: ZOFENOPRIL
     Dosage: UNK
  7. DIAZEPAM. [Interacting]
     Active Substance: DIAZEPAM
     Indication: NIGHTMARE
     Dosage: 10 MILLIGRAM, QD, BEFORE BED, 10 MG,HS
     Route: 065
  8. METFORMIN [Concomitant]
     Active Substance: METFORMIN HYDROCHLORIDE
     Indication: BLOOD GLUCOSE FLUCTUATION
     Dosage: UNK
     Route: 065
  9. BISOCARD [Concomitant]
     Active Substance: BISOPROLOL
     Dosage: UNK
  10. TRAZODONE [Concomitant]
     Active Substance: TRAZODONE HYDROCHLORIDE
     Dosage: 100 MILLIGRAM,UNK THREE HOURS BEFORE BED
     Route: 065
  11. ZOLPIDEM [Interacting]
     Active Substance: ZOLPIDEM\ZOLPIDEM TARTRATE
     Indication: INSOMNIA
  12. DEPREXETIN [Interacting]
     Active Substance: FLUOXETINE HYDROCHLORIDE
     Indication: FIBROMYALGIA
     Dosage: 20 MILLIGRAM, BID
     Route: 048
     Dates: start: 20171103, end: 20171122
  13. DULOXETINE. [Concomitant]
     Active Substance: DULOXETINE
     Indication: PAIN
     Dosage: 30 MILLIGRAM, INTHE MORNING
     Route: 065
  14. FLUOXETINE [Interacting]
     Active Substance: FLUOXETINE HYDROCHLORIDE
     Indication: DIABETES MELLITUS
  15. DEPREXETIN [Interacting]
     Active Substance: FLUOXETINE HYDROCHLORIDE
     Indication: DIABETES MELLITUS
  16. ZOLPIDEM [Suspect]
     Active Substance: ZOLPIDEM\ZOLPIDEM TARTRATE
     Indication: FIBROMYALGIA
     Dosage: 10 MILLIGRAM, QD, BEFROE BED, (10 MG,HS   )
     Route: 048
     Dates: start: 20171122, end: 20171124
  17. ZOLPIDEM [Interacting]
     Active Substance: ZOLPIDEM\ZOLPIDEM TARTRATE
     Indication: SLEEP DISORDER
  18. MIANSERIN [Interacting]
     Active Substance: MIANSERIN
     Indication: INSOMNIA
     Dosage: 20 MILLIGRAM, QD, HALF AN HOUR BEFORE BED (20 MG,HS   )
     Route: 065
  19. SIMVASTATIN. [Concomitant]
     Active Substance: SIMVASTATIN
     Dosage: UNK
  20. PARACETAMOL [Concomitant]
     Active Substance: ACETAMINOPHEN
     Dosage: UNK

REACTIONS (10)
  - Sleep disorder [Recovered/Resolved]
  - Drug interaction [Unknown]
  - Initial insomnia [Recovered/Resolved]
  - Nightmare [Recovered/Resolved]
  - Somnolence [Unknown]
  - Abnormal dreams [Recovered/Resolved]
  - Dry mouth [Unknown]
  - Off label use [Unknown]
  - Blood glucose fluctuation [Recovered/Resolved]
  - Poor quality sleep [Recovered/Resolved]
